FAERS Safety Report 4464666-2 (Version None)
Quarter: 2004Q3

REPORT INFORMATION
  Report Type: 
  Country: None (occurrence: None)
  Receive Date: 20040929
  Receipt Date: 20040913
  Transmission Date: 20050211
  Serious: Yes (Hospitalization)
  Sender: FDA-Public Use
  Company Number: JP_040904519

PATIENT
  Sex: Male

DRUGS (4)
  1. ZYPREXA [Suspect]
     Indication: SCHIZOPHRENIA
     Dosage: 10 MG/ 1 DAY
     Dates: start: 20040724, end: 20040729
  2. RISPERDAL [Concomitant]
  3. ROHYPNOL (FLUNITRAZEPAM) [Concomitant]
  4. AKINETON [Concomitant]

REACTIONS (5)
  - AKATHISIA [None]
  - ANXIETY [None]
  - CONDITION AGGRAVATED [None]
  - DYSLALIA [None]
  - IRRITABILITY [None]
